FAERS Safety Report 9916160 (Version 1)
Quarter: 2014Q1

REPORT INFORMATION
  Report Type: Spontaneous
  Country: US (occurrence: None)
  Receive Date: 20140220
  Receipt Date: 20140220
  Transmission Date: 20141002
  Serious: Yes (Other)
  Sender: FDA-Public Use
  Company Number: None

PATIENT
  Age: 92 Year
  Sex: Female

DRUGS (2)
  1. VITAMIN B12 [Suspect]
     Indication: BACTERIAL INFECTION
  2. ATROPINE [Suspect]

REACTIONS (2)
  - Intercepted medication error [None]
  - Drug dispensing error [None]
